FAERS Safety Report 6541545-8 (Version None)
Quarter: 2010Q1

REPORT INFORMATION
  Report Type: 
  Country: None (occurrence: None)
  Receive Date: 20100119
  Receipt Date: 20100107
  Transmission Date: 20100710
  Serious: Yes (Hospitalization)
  Sender: FDA-Public Use
  Company Number: AU-ASTRAZENECA-2010SE00671

PATIENT
  Age: 29 Year
  Sex: Female
  Weight: 106 kg

DRUGS (7)
  1. QUETIAPINE FUMARATE [Suspect]
     Indication: PROPHYLAXIS
     Dosage: 900 TO 1000 MG/DAY
     Route: 048
  2. HALOPERIDOL [Interacting]
     Indication: PSYCHOTIC DISORDER
     Route: 048
  3. HALOPERIDOL [Interacting]
     Dosage: 7.5 TO 12.5 MG DAILY
     Route: 048
  4. EFFEXOR [Interacting]
     Indication: ANTIDEPRESSANT THERAPY
     Route: 048
  5. ZOLOFT [Interacting]
     Indication: ANTIDEPRESSANT THERAPY
  6. FOLIC ACID [Concomitant]
     Indication: PROPHYLAXIS OF NEURAL TUBE DEFECT
     Route: 048
  7. ELEVIT [Concomitant]
     Indication: VITAMIN SUPPLEMENTATION
     Dosage: 1 IN 1 DAY

REACTIONS (7)
  - DRUG EXPOSURE DURING PREGNANCY [None]
  - DRUG INTERACTION [None]
  - HYPEREMESIS GRAVIDARUM [None]
  - POSTPARTUM DEPRESSION [None]
  - PSYCHOTIC DISORDER [None]
  - URINARY TRACT INFECTION [None]
  - WEIGHT DECREASED [None]
